FAERS Safety Report 16007041 (Version 2)
Quarter: 2019Q1

REPORT INFORMATION
  Report Type: Spontaneous
  Country: AU (occurrence: AU)
  Receive Date: 20190226
  Receipt Date: 20190302
  Transmission Date: 20190418
  Serious: Yes (Other)
  Sender: FDA-Public Use
  Company Number: AU-009507513-1902AUS008936

PATIENT
  Age: 70 Year
  Sex: Male
  Weight: 99 kg

DRUGS (4)
  1. ZOLADEX [Concomitant]
     Active Substance: GOSERELIN ACETATE
     Indication: PROSTATE CANCER METASTATIC
     Dosage: 10.8, 3 MONTHLY
     Route: 058
     Dates: start: 20171025
  2. COVERAM [Concomitant]
     Active Substance: AMLODIPINE\PERINDOPRIL
     Indication: HYPERTENSION
     Dosage: 10/10, DAILY
     Dates: start: 20170704
  3. METFORMIN [Suspect]
     Active Substance: METFORMIN HYDROCHLORIDE
     Dosage: UNK
  4. JANUMET [Suspect]
     Active Substance: METFORMIN HYDROCHLORIDE\SITAGLIPTIN PHOSPHATE
     Indication: DIABETES MELLITUS
     Dosage: 50/500, BID
     Dates: start: 20190207, end: 20190220

REACTIONS (3)
  - Bradycardia [Unknown]
  - Atrioventricular block first degree [Unknown]
  - Bundle branch block right [Unknown]

NARRATIVE: CASE EVENT DATE: 201902
